FAERS Safety Report 8013918-8 (Version None)
Quarter: 2011Q4

REPORT INFORMATION
  Report Type: 
  Country: None (occurrence: None)
  Receive Date: 20111229
  Receipt Date: 20111215
  Transmission Date: 20120403
  Serious: Yes (Other)
  Sender: FDA-Public Use
  Company Number: US-ROCHE-1018534

PATIENT
  Sex: Female
  Weight: 63.106 kg

DRUGS (9)
  1. ACTEMRA [Suspect]
     Dosage: DOSE - 8
     Dates: start: 20111125
  2. METHYLPREDNISOLONE [Concomitant]
     Dosage: 2 TAB 4 TIME/DAY FOR 1 WEEK, THEN 1 TAB 4 TIME/DAY FOR 1 WEEK, THEN 1 TAB DAILY FOR 1 WEEK
     Route: 048
  3. TRAZODONE HCL [Concomitant]
     Route: 048
  4. ACTEMRA [Suspect]
     Indication: RHEUMATOID ARTHRITIS
     Dosage: DOSE - 8
     Route: 042
     Dates: start: 20111111
  5. ATENOLOL [Concomitant]
     Dosage: EVERY DAY
     Route: 048
  6. AZATHIOPRINE [Concomitant]
     Dosage: 2 TABLETS EVERY DAY
     Route: 048
  7. BACTRIM DS [Concomitant]
     Route: 048
  8. INSULIN S [Concomitant]
  9. TRAMADOL HCL [Concomitant]
     Dosage: 1-2 TABLETS EVERY 6 HOURS AS NEEDED
     Route: 048

REACTIONS (2)
  - OEDEMA PERIPHERAL [None]
  - PAIN IN EXTREMITY [None]
